FAERS Safety Report 5934937-9 (Version None)
Quarter: 2008Q4

REPORT INFORMATION
  Report Type: 
  Country: None (occurrence: None)
  Receive Date: 20081027
  Receipt Date: 20080513
  Transmission Date: 20090506
  Serious: Yes (Hospitalization)
  Sender: FDA-Public Use
  Company Number: 1000001443

PATIENT
  Age: 49 Year
  Sex: Female

DRUGS (2)
  1. CITALOPRAM HYDROBROMIDE [Suspect]
     Dosage: 10 MG (10 MG, 1 IN 1 D), ORAL
     Route: 048
     Dates: start: 20080504
  2. BROMAZEPAM [Concomitant]

REACTIONS (4)
  - DIZZINESS [None]
  - FALL [None]
  - HAND FRACTURE [None]
  - SPINAL FRACTURE [None]
